FAERS Safety Report 8173470-3 (Version None)
Quarter: 2012Q1

REPORT INFORMATION
  Report Type: 
  Country: None (occurrence: None)
  Receive Date: 20120227
  Receipt Date: 20120216
  Transmission Date: 20120608
  Serious: Yes (Other)
  Sender: FDA-Public Use
  Company Number: US-1190296

PATIENT
  Age: 77 Year
  Sex: Male
  Weight: 88.4514 kg

DRUGS (2)
  1. BSS [Suspect]
     Indication: INTRAOCULAR LENS IMPLANT
     Dosage: (INTRAOCULAR)
     Route: 031
     Dates: start: 20111221, end: 20111221
  2. VIGAMOX [Suspect]
     Indication: INTRAOCULAR LENS IMPLANT
     Dosage: (OPHTHALMIC)
     Route: 047
     Dates: start: 20111221

REACTIONS (6)
  - POST PROCEDURAL COMPLICATION [None]
  - TREATMENT NONCOMPLIANCE [None]
  - EYE INFECTION BACTERIAL [None]
  - STREPTOCOCCAL INFECTION [None]
  - ENDOPHTHALMITIS [None]
  - VISUAL ACUITY REDUCED [None]
